FAERS Safety Report 6693277-3 (Version None)
Quarter: 2010Q2

REPORT INFORMATION
  Report Type: 
  Country: None (occurrence: None)
  Receive Date: 20100421
  Receipt Date: 20100421
  Transmission Date: 20101027
  Serious: Yes (Other)
  Sender: FDA-Public Use
  Company Number: None

PATIENT
  Age: 39 Year
  Sex: Female
  Weight: 119.296 kg

DRUGS (2)
  1. TOPIRAMATE [Suspect]
     Indication: EPILEPSY
     Dosage: 100MG 3 PO QDAY
     Route: 048
     Dates: start: 20100126
  2. TOPIRAMATE [Suspect]
     Indication: EPILEPSY
     Dosage: 100MG 3 PO QDAY
     Route: 048
     Dates: start: 20100420

REACTIONS (2)
  - CONVULSION [None]
  - PRODUCT SUBSTITUTION ISSUE [None]
